FAERS Safety Report 22373688 (Version 2)
Quarter: 2023Q2

REPORT INFORMATION
  Report Type: Spontaneous
  Country: US (occurrence: US)
  Receive Date: 20230526
  Receipt Date: 20230606
  Transmission Date: 20230722
  Serious: No
  Sender: FDA-Public Use
  Company Number: US-LUPIN PHARMACEUTICALS INC.-2023-03959

PATIENT
  Sex: Female
  Weight: 20.408 kg

DRUGS (1)
  1. CEPHALEXIN [Suspect]
     Active Substance: CEPHALEXIN
     Indication: Streptococcal infection
     Dosage: UNK UNK, TID (10 AND HALF ML, TID)
     Route: 048
     Dates: start: 20230514

REACTIONS (2)
  - Product storage error [Unknown]
  - No adverse event [Unknown]
